FAERS Safety Report 9674321 (Version 1)
Quarter: 2013Q4

REPORT INFORMATION
  Report Type: Spontaneous
  Country: US (occurrence: US)
  Receive Date: 20131107
  Receipt Date: 20131107
  Transmission Date: 20140711
  Serious: No
  Sender: FDA-Public Use
  Company Number: US-BIOGENIDEC-2009BI031270

PATIENT
  Age: 51 Year
  Sex: Female

DRUGS (2)
  1. TYSABRI [Suspect]
     Indication: MULTIPLE SCLEROSIS
     Route: 042
     Dates: start: 20090422, end: 20090721
  2. REBIF [Concomitant]

REACTIONS (4)
  - Hypersensitivity [Recovered/Resolved]
  - Multiple allergies [Recovered/Resolved]
  - Urticaria [Recovered/Resolved]
  - Multiple sclerosis relapse [Not Recovered/Not Resolved]
